FAERS Safety Report 9530204 (Version 2)
Quarter: 2013Q3

REPORT INFORMATION
  Report Type: Spontaneous
  Country: JP (occurrence: JP)
  Receive Date: 20130917
  Receipt Date: 20130923
  Transmission Date: 20140515
  Serious: Yes (Hospitalization, Other)
  Sender: FDA-Public Use
  Company Number: JP-ABBVIE-13P-087-1148059-00

PATIENT
  Age: 87 Year
  Sex: Female

DRUGS (12)
  1. CLARITH [Suspect]
     Indication: HELICOBACTER INFECTION
     Route: 048
     Dates: start: 20130714, end: 20130719
  2. SAWACILLIN [Concomitant]
     Indication: HELICOBACTER INFECTION
     Route: 048
     Dates: start: 201307, end: 20130719
  3. PARIET [Concomitant]
     Indication: HELICOBACTER INFECTION
     Route: 048
     Dates: start: 201307
  4. EQUA [Concomitant]
     Indication: DIABETES MELLITUS
     Route: 048
  5. AMARYL [Concomitant]
     Indication: DIABETES MELLITUS
     Dosage: 2 MG (1.5 MG ONCE A DAY, 0.5 MG ONCE A DAY)
     Route: 048
  6. LIVALO [Concomitant]
     Indication: HYPERCHOLESTEROLAEMIA
     Route: 048
  7. NORVASC [Concomitant]
     Indication: HYPERTENSION
     Route: 048
  8. INHIBACE [Concomitant]
     Indication: HYPERTENSION
     Route: 048
  9. ALFAROL [Concomitant]
     Indication: OSTEOPOROSIS
     Route: 048
  10. FOSAMAC [Concomitant]
     Indication: OSTEOPOROSIS
     Route: 048
  11. MAGNESIUM OXIDE [Concomitant]
     Indication: CONSTIPATION
     Route: 048
  12. MEILAX [Concomitant]
     Indication: PRODUCT USED FOR UNKNOWN INDICATION
     Dates: end: 20130717

REACTIONS (1)
  - Epilepsy [Recovered/Resolved]
